FAERS Safety Report 12474526 (Version 2)
Quarter: 2016Q3

REPORT INFORMATION
  Report Type: Report from Study
  Country: US (occurrence: US)
  Receive Date: 20160617
  Receipt Date: 20160712
  Transmission Date: 20161109
  Serious: No
  Sender: FDA-Public Use
  Company Number: PHEH2016US014771

PATIENT
  Sex: Female

DRUGS (2)
  1. COSENTYX [Suspect]
     Active Substance: SECUKINUMAB
     Indication: PSORIASIS
     Route: 065
  2. COSENTYX [Suspect]
     Active Substance: SECUKINUMAB
     Indication: PSORIATIC ARTHROPATHY

REACTIONS (8)
  - Furuncle [Recovered/Resolved]
  - Contusion [Unknown]
  - Candida infection [Recovered/Resolved]
  - Psoriatic arthropathy [Unknown]
  - Hyperhidrosis [Unknown]
  - Muscle spasms [Recovered/Resolved]
  - Diarrhoea [Unknown]
  - Oropharyngeal pain [Recovered/Resolved]

NARRATIVE: CASE EVENT DATE: 20160628
